FAERS Safety Report 7969669-9 (Version None)
Quarter: 2011Q4

REPORT INFORMATION
  Report Type: 
  Country: None (occurrence: None)
  Receive Date: 20111212
  Receipt Date: 20111205
  Transmission Date: 20120403
  Serious: Yes (Hospitalization)
  Sender: FDA-Public Use
  Company Number: TW-PFIZER INC-2011297430

PATIENT
  Age: 61 Year
  Sex: Female

DRUGS (1)
  1. CELECOXIB [Suspect]
     Dosage: 100 MG, ONE DOSE

REACTIONS (1)
  - ACUTE GENERALISED EXANTHEMATOUS PUSTULOSIS [None]
